FAERS Safety Report 4511574-4 (Version None)
Quarter: 2004Q4

REPORT INFORMATION
  Report Type: 
  Country: None (occurrence: None)
  Receive Date: 20041129
  Receipt Date: 20041004
  Transmission Date: 20050328
  Serious: No
  Sender: FDA-Public Use
  Company Number: US-BRISTOL-MYERS SQUIBB COMPANY-12720785

PATIENT
  Age: 28 Year
  Sex: Female

DRUGS (2)
  1. ABILIFY [Suspect]
     Indication: PSYCHOMOTOR HYPERACTIVITY
     Route: 048
  2. FLUOXETINE HCL [Concomitant]

REACTIONS (7)
  - CONSTIPATION [None]
  - DEHYDRATION [None]
  - DIFFICULTY IN WALKING [None]
  - DIZZINESS [None]
  - DYSSTASIA [None]
  - INSOMNIA [None]
  - MOVEMENT DISORDER [None]
